FAERS Safety Report 10768136 (Version 1)
Quarter: 2015Q1

REPORT INFORMATION
  Report Type: Spontaneous
  Country: CN (occurrence: CN)
  Receive Date: 20150206
  Receipt Date: 20150206
  Transmission Date: 20150721
  Serious: Yes (Hospitalization, Other)
  Sender: FDA-Public Use
  Company Number: CN-ROCHE-1533359

PATIENT
  Age: 32 Year
  Sex: Male
  Weight: 55 kg

DRUGS (4)
  1. GLYCYRRHIZIN [Concomitant]
     Active Substance: GLYCYRRHIZIN
     Indication: CHRONIC HEPATITIS C
     Dosage: 3U THREE TIMES A DAY
     Route: 048
     Dates: start: 20140620, end: 20140701
  2. PEGASYS [Suspect]
     Active Substance: PEGINTERFERON ALFA-2A
     Indication: CHRONIC HEPATITIS C
     Route: 058
     Dates: start: 20140623, end: 20140630
  3. VITAMIN C [Concomitant]
     Active Substance: ASCORBIC ACID
     Indication: CHRONIC HEPATITIS C
     Route: 041
     Dates: start: 20140620, end: 20140627
  4. COMPOUND DICHLOROACETATE DIISOPROPYLAMINE [Concomitant]
     Indication: CHRONIC HEPATITIS C
     Route: 041
     Dates: start: 20140620, end: 20140623

REACTIONS (1)
  - Cytopenia [Not Recovered/Not Resolved]

NARRATIVE: CASE EVENT DATE: 20140626
